FAERS Safety Report 22043006 (Version 1)
Quarter: 2023Q1

REPORT INFORMATION
  Report Type: Report from Study
  Country: US (occurrence: None)
  Receive Date: 20230228
  Receipt Date: 20230228
  Transmission Date: 20230417
  Serious: Yes (Death)
  Sender: FDA-Public Use
  Company Number: 2023A046461

PATIENT
  Sex: Male
  Weight: 78.3 kg

DRUGS (1)
  1. CALQUENCE [Suspect]
     Active Substance: ACALABRUTINIB
     Indication: Prostate cancer
     Route: 048
     Dates: start: 20210209

REACTIONS (1)
  - Death [Fatal]
